FAERS Safety Report 9993958 (Version 1)
Quarter: 2014Q1

REPORT INFORMATION
  Report Type: Spontaneous
  Country: US (occurrence: US)
  Receive Date: 20140310
  Receipt Date: 20140310
  Transmission Date: 20141002
  Serious: No
  Sender: FDA-Public Use
  Company Number: US-AMGEN-USASP2013054456

PATIENT
  Sex: 0

DRUGS (3)
  1. SENSIPAR [Suspect]
     Indication: PRODUCT USED FOR UNKNOWN INDICATION
     Route: 065
  2. ZEMPLAR [Concomitant]
  3. VITAMIN D                          /00107901/ [Concomitant]

REACTIONS (1)
  - Blood parathyroid hormone abnormal [Unknown]
